FAERS Safety Report 8922641 (Version 2)
Quarter: 2012Q4

REPORT INFORMATION
  Report Type: Report from Study
  Country: CA (occurrence: CA)
  Receive Date: 20121123
  Receipt Date: 20121211
  Transmission Date: 20130627
  Serious: Yes (Hospitalization)
  Sender: FDA-Public Use
  Company Number: CA-AMGEN-CANCT2012073797

PATIENT
  Age: 88 Year
  Sex: Female

DRUGS (17)
  1. DENOSUMAB [Suspect]
     Indication: OSTEOPOROSIS POSTMENOPAUSAL
     Dosage: 60 mg, q6mo
     Route: 058
     Dates: start: 20080206
  2. VITAMIN E [Concomitant]
     Indication: SUPPLEMENTATION THERAPY
     Dosage: 400 IU, qd
     Route: 048
  3. ASPIRIN [Concomitant]
     Indication: PROPHYLAXIS
     Dosage: 81 mg, qd
     Route: 048
     Dates: start: 20071018
  4. FELODIPINE [Concomitant]
     Indication: HYPERTENSION
     Dosage: 5 mg, qd
     Route: 048
     Dates: start: 20071127
  5. HYDROCHLOROTHIAZIDE [Concomitant]
     Indication: HYPERTENSION
     Dosage: 25 mg, qd
     Route: 048
     Dates: start: 20071127
  6. FISH OIL [Concomitant]
     Indication: SUPPLEMENTATION THERAPY
     Dosage: UNK UNK, qd
     Route: 048
     Dates: start: 20090116
  7. TYLENOL ARTHRITIS [Concomitant]
     Indication: HIP ARTHROPLASTY
     Dosage: UNK
     Route: 048
     Dates: start: 20110920
  8. CALCIUM CITRATE [Concomitant]
     Indication: OSTEOPOROSIS
     Dosage: 900 mg, qd
     Route: 048
     Dates: start: 20120808
  9. VITAMIN D [Concomitant]
     Indication: OSTEOPOROSIS
     Dosage: 3000 IU, UNK
     Route: 048
     Dates: start: 20120808
  10. ZOPICLONE [Concomitant]
     Indication: ANXIETY
     Dosage: 5 mg, qd
     Route: 048
     Dates: start: 201208
  11. CAPTOPRIL [Concomitant]
     Indication: HYPERTENSION
     Dosage: 25 mg, qd
     Route: 048
     Dates: start: 20120813
  12. FERROUS SULPHATE [Concomitant]
     Indication: SUPPLEMENTATION THERAPY
     Dosage: 20 mg, qd
     Route: 048
  13. RIVAROXABAN [Concomitant]
     Indication: PROPHYLAXIS
     Dosage: 10 mg, qd
     Route: 048
     Dates: start: 20120813
  14. PANTOPRAZOLE [Concomitant]
     Indication: PROPHYLAXIS
     Dosage: 40 mg, qd
     Route: 048
     Dates: start: 20120813
  15. DIPHENHYDRAMINE [Concomitant]
     Indication: PROPHYLAXIS
     Dosage: 25 mg, prn
     Route: 048
     Dates: start: 20120813
  16. OXYCODONE [Concomitant]
     Indication: HIP ARTHROPLASTY
     Dosage: 5 mg, prn
     Route: 048
     Dates: start: 20120813
  17. INFLUENZA VACCINE [Concomitant]
     Indication: INFLUENZA
     Dosage: UNK
     Route: 030
     Dates: start: 20121102

REACTIONS (2)
  - Hypertension [Recovered/Resolved]
  - Troponin increased [Recovered/Resolved]
